FAERS Safety Report 11256264 (Version 2)
Quarter: 2015Q3

REPORT INFORMATION
  Report Type: Spontaneous
  Country: BR (occurrence: BR)
  Receive Date: 20150709
  Receipt Date: 20150812
  Transmission Date: 20151125
  Serious: Yes (Hospitalization, Other)
  Sender: FDA-Public Use
  Company Number: BR-ELI_LILLY_AND_COMPANY-BR201507000340

PATIENT
  Sex: Male
  Weight: 69 kg

DRUGS (2)
  1. GALVUS [Concomitant]
     Active Substance: VILDAGLIPTIN
     Indication: STRESS
     Dosage: UNK, UNKNOWN
     Route: 065
     Dates: start: 201502
  2. HUMALOG [Suspect]
     Active Substance: INSULIN LISPRO
     Indication: DIABETES MELLITUS MANAGEMENT
     Dosage: UNK UNK, QD
     Route: 058

REACTIONS (4)
  - Diabetes mellitus inadequate control [Recovering/Resolving]
  - Hypoglycaemia [Recovering/Resolving]
  - Visual acuity reduced [Not Recovered/Not Resolved]
  - Incorrect dose administered [Unknown]

NARRATIVE: CASE EVENT DATE: 2014
